FAERS Safety Report 19350823 (Version 1)
Quarter: 2021Q2

REPORT INFORMATION
  Report Type: Spontaneous
  Country: CN (occurrence: CN)
  Receive Date: 20210531
  Receipt Date: 20210531
  Transmission Date: 20210717
  Serious: Yes (Hospitalization)
  Sender: FDA-Public Use
  Company Number: CN-BAXTER-2021BAX013422

PATIENT
  Age: 64 Year
  Sex: Male
  Weight: 60 kg

DRUGS (8)
  1. SODIUM CHLORIDE. [Suspect]
     Active Substance: SODIUM CHLORIDE
     Indication: MEDICATION DILUTION
     Dosage: CYCLOPHOSPHAMIDE FOR INJECTION 0.2G + SODIUM CHLORIDE INJECTION 100 ML
     Route: 041
     Dates: start: 20210507, end: 20210513
  2. ENDOXAN [Suspect]
     Active Substance: CYCLOPHOSPHAMIDE
     Indication: ANTI-NEUTROPHIL CYTOPLASMIC ANTIBODY POSITIVE VASCULITIS
     Dosage: CYCLOPHOSPHAMIDE FOR INJECTION 0.2G + SODIUM CHLORIDE INJECTION 100 ML
     Route: 041
     Dates: start: 20210507, end: 20210513
  3. SODIUM CHLORIDE. [Suspect]
     Active Substance: SODIUM CHLORIDE
     Dosage: DOSE RE?INTRODUCED, CYCLOPHOSPHAMIDE FOR INJECTION + SODIUM CHLORIDE INJECTION
     Route: 041
     Dates: start: 202105
  4. ENDOXAN [Suspect]
     Active Substance: CYCLOPHOSPHAMIDE
     Dosage: DOSE RE?INTRODUCED, CYCLOPHOSPHAMIDE FOR INJECTION  + SODIUM CHLORIDE INJECTION
     Route: 041
     Dates: start: 202105
  5. METHYLPREDNISOLONE SODIUM SUCCINATE. [Suspect]
     Active Substance: METHYLPREDNISOLONE SODIUM SUCCINATE
     Indication: ANTI-NEUTROPHIL CYTOPLASMIC ANTIBODY POSITIVE VASCULITIS
     Dosage: METHYLPREDNISOLONE SODIUM SUCCINATE FOR INJECTION 40 MG + SODIUM CHLORIDE INJECTION 100 ML
     Route: 041
     Dates: start: 20210507, end: 20210512
  6. METHYLPREDNISOLONE SODIUM SUCCINATE. [Suspect]
     Active Substance: METHYLPREDNISOLONE SODIUM SUCCINATE
     Dosage: DOSE RE?INTRODUCED, METHYLPREDNISOLONE SODIUM SUCCINATE FOR INJECTION  + SODIUM CHLORIDE INJECTION
     Route: 041
     Dates: start: 202105
  7. SODIUM CHLORIDE. [Suspect]
     Active Substance: SODIUM CHLORIDE
     Dosage: DOSE RE?INTRODUCED, METHYLPREDNISOLONE SODIUM SUCCINATE FOR INJECTION + SODIUM CHLORIDE INJECTION
     Route: 041
     Dates: start: 202105
  8. SODIUM CHLORIDE. [Suspect]
     Active Substance: SODIUM CHLORIDE
     Dosage: METHYLPREDNISOLONE SODIUM SUCCINATE FOR INJECTION 40 MG + SODIUM CHLORIDE INJECTION 100 ML
     Route: 041
     Dates: start: 20210507, end: 20210512

REACTIONS (3)
  - Gastrointestinal disorder [Recovering/Resolving]
  - Decreased appetite [Recovering/Resolving]
  - Hypokalaemia [Recovering/Resolving]

NARRATIVE: CASE EVENT DATE: 20210510
